FAERS Safety Report 21367535 (Version 1)
Quarter: 2022Q3

REPORT INFORMATION
  Report Type: Spontaneous
  Country: CN (occurrence: None)
  Receive Date: 20220923
  Receipt Date: 20220923
  Transmission Date: 20221027
  Serious: Yes (Other)
  Sender: FDA-Public Use
  Company Number: CN-ROCHE-3179622

PATIENT
  Age: 66 Year
  Sex: Female

DRUGS (6)
  1. HERCEPTIN [Suspect]
     Active Substance: TRASTUZUMAB
     Indication: Breast cancer
     Dosage: TCBHP REGIMEN, ON 06/SEP/2021, 27/SEP/2021, 18/OCT/2021, 08/NOV/2021, 29/NOV/2021, AND 23/DEC/2021.
     Route: 041
  2. PERJETA [Suspect]
     Active Substance: PERTUZUMAB
     Indication: Breast cancer
     Dosage: TCBHP REGIMEN, ON 06/SEP/2021, 27/SEP/2021, 18/OCT/2021, 08/NOV/2021, 29/NOV/2021, AND 23/DEC/2021.
     Route: 065
  3. KADCYLA [Suspect]
     Active Substance: ADO-TRASTUZUMAB EMTANSINE
     Indication: Breast cancer
     Route: 065
     Dates: start: 20220218
  4. DOCETAXEL [Concomitant]
     Active Substance: DOCETAXEL
     Indication: Breast cancer
     Dosage: TCBHP REGIMEN, ON 06/SEP/2021, 27/SEP/2021, 18/OCT/2021, 08/NOV/2021, 29/NOV/2021, AND 23/DEC/2021.
  5. CARBOPLATIN [Concomitant]
     Active Substance: CARBOPLATIN
     Indication: Breast cancer
     Dosage: TCBHP REGIMEN, ON 06/SEP/2021, 27/SEP/2021, 18/OCT/2021, 08/NOV/2021, 29/NOV/2021, AND 23/DEC/2021.
  6. LETROZOLE [Concomitant]
     Active Substance: LETROZOLE

REACTIONS (2)
  - Platelet count decreased [Recovering/Resolving]
  - Hepatic function abnormal [Recovering/Resolving]
